FAERS Safety Report 15657225 (Version 2)
Quarter: 2018Q4

REPORT INFORMATION
  Report Type: Report from Study
  Country: CA (occurrence: CA)
  Receive Date: 20181126
  Receipt Date: 20181211
  Transmission Date: 20190205
  Serious: Yes (Other)
  Sender: FDA-Public Use
  Company Number: CA-JNJFOC-20181125656

PATIENT
  Age: 63 Year
  Sex: Male
  Weight: 64 kg

DRUGS (1)
  1. REMICADE [Suspect]
     Active Substance: INFLIXIMAB
     Indication: CROHN^S DISEASE
     Dosage: STRENGTH = 100 MG
     Route: 042
     Dates: start: 20151210, end: 20181116

REACTIONS (4)
  - Off label use [Unknown]
  - Drug effect decreased [Unknown]
  - Lung neoplasm [Unknown]
  - Product use issue [Unknown]

NARRATIVE: CASE EVENT DATE: 20151210
